FAERS Safety Report 6615953-0 (Version None)
Quarter: 2010Q1

REPORT INFORMATION
  Report Type: 
  Country: None (occurrence: None)
  Receive Date: 20100305
  Receipt Date: 20100226
  Transmission Date: 20100710
  Serious: Yes (Hospitalization)
  Sender: FDA-Public Use
  Company Number: A0847059A

PATIENT
  Sex: Female

DRUGS (11)
  1. LOVAZA [Suspect]
     Dosage: 4CAP PER DAY
     Route: 048
     Dates: start: 20070101
  2. FISH OIL [Suspect]
  3. UNSPECIFIED MEDICATION [Concomitant]
  4. ENALAPRIL MALEATE [Concomitant]
  5. TRICOR [Concomitant]
  6. CRESTOR [Concomitant]
  7. LORATADINE [Concomitant]
  8. VITAMIN C [Concomitant]
  9. IBUPROFEN [Concomitant]
  10. CALCIUM [Concomitant]
  11. ASPIRIN [Concomitant]

REACTIONS (3)
  - ARTHRALGIA [None]
  - ARTHRITIS INFECTIVE [None]
  - JOINT SWELLING [None]
